FAERS Safety Report 18192869 (Version 1)
Quarter: 2020Q3

REPORT INFORMATION
  Report Type: Spontaneous
  Country: US (occurrence: US)
  Receive Date: 20200825
  Receipt Date: 20200825
  Transmission Date: 20201103
  Serious: No
  Sender: FDA-Public Use
  Company Number: None

PATIENT
  Age: 53 Year
  Sex: Female
  Weight: 35.4 kg

DRUGS (23)
  1. GUAFENESIN DEXTROMETHORPHAN [Concomitant]
     Dates: start: 20200818, end: 20200824
  2. SIMVASTATIN. [Concomitant]
     Active Substance: SIMVASTATIN
     Dates: start: 20200821, end: 20200823
  3. BISACODYL. [Concomitant]
     Active Substance: BISACODYL
     Dates: start: 20200821, end: 20200821
  4. VALSARTAN. [Concomitant]
     Active Substance: VALSARTAN
     Dates: start: 20200818, end: 20200818
  5. REMDESIVIR. [Suspect]
     Active Substance: REMDESIVIR
     Indication: COVID-19
     Dosage: ?          OTHER FREQUENCY:ONCE;?
     Route: 040
     Dates: start: 20200818, end: 20200818
  6. BENZONATATE. [Concomitant]
     Active Substance: BENZONATATE
     Dates: start: 20200822, end: 20200822
  7. ATORVASTATIN [Concomitant]
     Active Substance: ATORVASTATIN
     Dates: start: 20200820, end: 20200821
  8. POLYETHYLENE GLYCOL [Concomitant]
     Active Substance: POLYETHYLENE GLYCOLS
     Dates: start: 20200821, end: 20200824
  9. LEVOTHYROXINE. [Concomitant]
     Active Substance: LEVOTHYROXINE
     Dates: start: 20200818, end: 20200824
  10. REMDESIVIR. [Suspect]
     Active Substance: REMDESIVIR
     Indication: COVID-19
     Route: 041
     Dates: start: 20200818, end: 20200821
  11. METOPROLOL SUCCINATE. [Concomitant]
     Active Substance: METOPROLOL SUCCINATE
     Dates: start: 20200818, end: 20200824
  12. KETOROLAC [Concomitant]
     Active Substance: KETOROLAC TROMETHAMINE
     Dates: start: 20200824, end: 20200824
  13. ASPIRIN. [Concomitant]
     Active Substance: ASPIRIN
     Dates: start: 20200818, end: 20200824
  14. ALBUTEROL HFA [Concomitant]
     Active Substance: ALBUTEROL SULFATE
     Dates: start: 20200819, end: 20200821
  15. OLANZAPINE. [Concomitant]
     Active Substance: OLANZAPINE
     Dates: start: 20200818, end: 20200818
  16. SPIRONOLACTONE. [Concomitant]
     Active Substance: SPIRONOLACTONE
     Dates: start: 20200818, end: 20200818
  17. GABAPENTIN. [Concomitant]
     Active Substance: GABAPENTIN
     Dates: start: 20200818, end: 20200823
  18. PANTOPRAZOLE [Concomitant]
     Active Substance: PANTOPRAZOLE
     Dates: start: 20200818, end: 20200824
  19. DEXAMETHASONE SODIUM PHOSPHATE. [Concomitant]
     Active Substance: DEXAMETHASONE SODIUM PHOSPHATE
     Dates: start: 20200818, end: 20200824
  20. INSULIN GLARGINE [Concomitant]
     Active Substance: INSULIN GLARGINE
     Dates: start: 20200818, end: 20200824
  21. ONDANSETRON [Concomitant]
     Active Substance: ONDANSETRON
     Dates: start: 20200818, end: 20200824
  22. ENOXAPARIN [Concomitant]
     Active Substance: ENOXAPARIN
     Dates: start: 20200818, end: 20200824
  23. FUROSEMIDE. [Concomitant]
     Active Substance: FUROSEMIDE
     Dates: start: 20200820, end: 20200820

REACTIONS (1)
  - Incorrect product administration duration [None]

NARRATIVE: CASE EVENT DATE: 20200818
